FAERS Safety Report 21805506 (Version 1)
Quarter: 2023Q1

REPORT INFORMATION
  Report Type: Spontaneous
  Country: IT (occurrence: IT)
  Receive Date: 20230102
  Receipt Date: 20230102
  Transmission Date: 20230418
  Serious: Yes (Other)
  Sender: FDA-Public Use
  Company Number: IT-BAXTER-2022BAX030956

PATIENT

DRUGS (6)
  1. CISPLATIN [Suspect]
     Active Substance: CISPLATIN
     Indication: Product used for unknown indication
     Dosage: UNK, (THREE CYCLES AT AN UNSPECIFIED DOSE)
     Route: 065
     Dates: start: 20210715, end: 20210924
  2. PEMETREXED [Suspect]
     Active Substance: PEMETREXED
     Indication: Product used for unknown indication
     Dosage: UNK, (THREE CYCLES AT AN UNSPECIFIED DOSE)
     Route: 065
     Dates: start: 20210715, end: 20210924
  3. PEMETREXED [Suspect]
     Active Substance: PEMETREXED
     Dosage: UNK, (TWO CYCLES AT AN UNSPECIFIED DOSE)
     Route: 065
     Dates: start: 20220718, end: 20220808
  4. SODIUM CHLORIDE [Suspect]
     Active Substance: SODIUM CHLORIDE
     Indication: Medication dilution
     Dosage: UNK, (THREE CYCLES AT AN UNSPECIFIED DOSE), (UNSPECIFIED CONTAINER)
     Route: 065
     Dates: start: 20210715, end: 20210924
  5. SODIUM CHLORIDE [Suspect]
     Active Substance: SODIUM CHLORIDE
     Dosage: UNK, (TWO CYCLES AT AN UNSPECIFIED DOSE), (UNSPECIFIED CONTAINER)
     Route: 065
     Dates: start: 20220718, end: 20220808
  6. CARBOPLATIN [Suspect]
     Active Substance: CARBOPLATIN
     Indication: Product used for unknown indication
     Dosage: UNK, (TWO CYCLES AT AN UNSPECIFIED DOSE)
     Route: 065
     Dates: start: 20220718, end: 20220808

REACTIONS (1)
  - Disease progression [Unknown]
